FAERS Safety Report 7419706-5 (Version None)
Quarter: 2011Q2

REPORT INFORMATION
  Report Type: 
  Country: None (occurrence: None)
  Receive Date: 20110418
  Receipt Date: 20110411
  Transmission Date: 20111010
  Serious: Yes (Death, Life-Threatening, Hospitalization)
  Sender: FDA-Public Use
  Company Number: FR-ELI_LILLY_AND_COMPANY-FR201012000936

PATIENT
  Sex: Female
  Weight: 165 kg

DRUGS (10)
  1. EFFERALGAN CODEINE [Concomitant]
  2. GLUCOPHAGE [Concomitant]
  3. TAHOR [Concomitant]
  4. DOMPERIDONE [Concomitant]
  5. LEVOTHYROX [Concomitant]
  6. AVANDAMET [Concomitant]
  7. BYETTA [Suspect]
     Dosage: 10 UG, 2/D
     Route: 058
     Dates: start: 20081204, end: 20090410
  8. ZOPICLONE [Concomitant]
  9. BYETTA [Suspect]
     Indication: TYPE 2 DIABETES MELLITUS
     Dosage: 5 UG, BID
     Route: 058
     Dates: start: 20081103, end: 20081203
  10. INIPOMP [Concomitant]

REACTIONS (14)
  - ACUTE ABDOMEN [None]
  - METABOLIC ACIDOSIS [None]
  - DECREASED APPETITE [None]
  - QUADRIPARESIS [None]
  - ALTERED STATE OF CONSCIOUSNESS [None]
  - GENERAL PHYSICAL HEALTH DETERIORATION [None]
  - CARDIAC ARREST [None]
  - HAEMOGLOBIN DECREASED [None]
  - PELVIC HAEMATOMA [None]
  - WERNICKE'S ENCEPHALOPATHY [None]
  - ABNORMAL BEHAVIOUR [None]
  - MULTI-ORGAN FAILURE [None]
  - MECHANICAL VENTILATION [None]
  - HYPOVOLAEMIC SHOCK [None]
